FAERS Safety Report 5315837-4 (Version None)
Quarter: 2007Q2

REPORT INFORMATION
  Report Type: 
  Country: None (occurrence: None)
  Receive Date: 20070503
  Receipt Date: 20070430
  Transmission Date: 20071010
  Serious: Yes (Life-Threatening, Hospitalization)
  Sender: FDA-Public Use
  Company Number: US-ELI_LILLY_AND_COMPANY-US200608002823

PATIENT
  Age: 51 Year
  Sex: Male
  Weight: 85.26 kg

DRUGS (5)
  1. ZYPREXA [Suspect]
     Indication: BIPOLAR DISORDER
     Dosage: 5 MG, UNKNOWN
     Route: 048
     Dates: start: 20030101, end: 20040101
  2. ZYPREXA [Suspect]
     Dosage: 10 MG, UNK
     Dates: start: 20030101, end: 20040101
  3. WELLBUTRIN [Concomitant]
     Dates: start: 19990101, end: 20060101
  4. EFFEXOR [Concomitant]
     Dates: start: 19990101, end: 20060101
  5. INDERAL [Concomitant]
     Dates: start: 20050101

REACTIONS (6)
  - CHOLECYSTECTOMY [None]
  - DIABETES MELLITUS INSULIN-DEPENDENT [None]
  - DIABETES MELLITUS NON-INSULIN-DEPENDENT [None]
  - PANCREATIC PSEUDOCYST [None]
  - PANCREATITIS NECROTISING [None]
  - SEPTIC SHOCK [None]
